FAERS Safety Report 24398248 (Version 1)
Quarter: 2024Q4

REPORT INFORMATION
  Report Type: Spontaneous
  Country: US (occurrence: None)
  Receive Date: 20241004
  Receipt Date: 20241004
  Transmission Date: 20250115
  Serious: Yes (Hospitalization)
  Sender: Public
  Company Number: None

PATIENT
  Sex: Male

DRUGS (1)
  1. HUMIRA [Suspect]
     Active Substance: ADALIMUMAB
     Indication: Crohn^s disease
     Dosage: 40MG  EVERY 14 DAYS SUBCUTANEOUS?
     Route: 058
     Dates: start: 201712

REACTIONS (3)
  - Pain [None]
  - Condition aggravated [None]
  - Crohn^s disease [None]
